FAERS Safety Report 14639274 (Version 3)
Quarter: 2018Q1

REPORT INFORMATION
  Report Type: Spontaneous
  Country: US (occurrence: US)
  Receive Date: 20180315
  Receipt Date: 20180326
  Transmission Date: 20180509
  Serious: Yes (Other)
  Sender: FDA-Public Use
  Company Number: US-IPSEN BIOPHARMACEUTICALS, INC.-2018-00955

PATIENT
  Sex: Female
  Weight: 63.5 kg

DRUGS (5)
  1. DYSPORT [Suspect]
     Active Substance: ABOBOTULINUMTOXINA
     Indication: MUSCLE SPASTICITY
     Route: 030
     Dates: start: 201310, end: 201310
  2. DYSPORT [Suspect]
     Active Substance: ABOBOTULINUMTOXINA
     Indication: MUSCLE SPASTICITY
  3. DYSPORT [Suspect]
     Active Substance: ABOBOTULINUMTOXINA
     Indication: MUSCLE SPASTICITY
  4. DYSPORT [Suspect]
     Active Substance: ABOBOTULINUMTOXINA
     Indication: OFF LABEL USE
  5. DYSPORT [Suspect]
     Active Substance: ABOBOTULINUMTOXINA
     Indication: MUSCLE SPASTICITY

REACTIONS (13)
  - Paraesthesia [Recovering/Resolving]
  - Off label use [Unknown]
  - Blood immunoglobulin M increased [Unknown]
  - Quality of life decreased [Unknown]
  - Diplopia [Recovered/Resolved]
  - Anxiety [Unknown]
  - Muscle twitching [Not Recovered/Not Resolved]
  - Neuromuscular toxicity [Unknown]
  - Muscle spasms [Recovered/Resolved]
  - Sensory loss [Not Recovered/Not Resolved]
  - Malaise [Unknown]
  - Muscular weakness [Recovered/Resolved]
  - Frustration tolerance decreased [Unknown]

NARRATIVE: CASE EVENT DATE: 2013
